FAERS Safety Report 18890798 (Version 1)
Quarter: 2021Q1

REPORT INFORMATION
  Report Type: Spontaneous
  Country: AE (occurrence: AE)
  Receive Date: 20210215
  Receipt Date: 20210215
  Transmission Date: 20210420
  Serious: Yes (Other)
  Sender: FDA-Public Use
  Company Number: AE-SA-2021SA050347

PATIENT
  Sex: Male

DRUGS (1)
  1. DUPIXENT [Suspect]
     Active Substance: DUPILUMAB
     Indication: DERMATITIS ATOPIC

REACTIONS (4)
  - Metastases to lung [Unknown]
  - White blood cell count decreased [Unknown]
  - Pancreatic carcinoma [Unknown]
  - Platelet count decreased [Unknown]
